FAERS Safety Report 17000751 (Version 1)
Quarter: 2019Q4

REPORT INFORMATION
  Report Type: Spontaneous
  Country: US (occurrence: US)
  Receive Date: 20191106
  Receipt Date: 20191106
  Transmission Date: 20200122
  Serious: No
  Sender: FDA-Public Use
  Company Number: US-TEVA-2019-US-1131013

PATIENT
  Sex: Female

DRUGS (1)
  1. BUPRENORPHINE PATCH TEVA [Suspect]
     Active Substance: BUPRENORPHINE
     Indication: PAIN
     Dosage: FORM STRENGTH: 15 MCG/HR
     Route: 062
     Dates: start: 20191024

REACTIONS (4)
  - Product label issue [Unknown]
  - Drug ineffective [Unknown]
  - Product adhesion issue [Unknown]
  - Pain [Unknown]
